FAERS Safety Report 16653966 (Version 1)
Quarter: 2019Q3

REPORT INFORMATION
  Report Type: Spontaneous
  Country: FR (occurrence: FR)
  Receive Date: 20190731
  Receipt Date: 20190731
  Transmission Date: 20191004
  Serious: Yes (Death, Other)
  Sender: FDA-Public Use
  Company Number: FR-SHIRE-FR201923804

PATIENT

DRUGS (1)
  1. KIOVIG [Suspect]
     Active Substance: HUMAN IMMUNOGLOBULIN G
     Indication: AUTONOMIC NERVOUS SYSTEM IMBALANCE
     Dosage: 30 GRAM, 1X/DAY:QD
     Route: 042
     Dates: start: 20190626

REACTIONS (4)
  - Cardiac failure acute [Fatal]
  - Cardio-respiratory arrest [Fatal]
  - Off label use [Unknown]
  - Acute pulmonary oedema [Fatal]

NARRATIVE: CASE EVENT DATE: 20190628
